FAERS Safety Report 25551254 (Version 1)
Quarter: 2025Q3

REPORT INFORMATION
  Report Type: Spontaneous
  Country: BR (occurrence: BR)
  Receive Date: 20250714
  Receipt Date: 20250714
  Transmission Date: 20251020
  Serious: Yes (Hospitalization, Other)
  Sender: NOVARTIS
  Company Number: BR-002147023-NVSC2025BR111078

PATIENT
  Age: 42 Year
  Sex: Female
  Weight: 71 kg

DRUGS (1)
  1. KISQALI [Suspect]
     Active Substance: RIBOCICLIB SUCCINATE
     Indication: Breast cancer
     Dosage: 200 MG, TID (DAILY FOR 21 DAYS AND 7- DAY BREAK) (63 TABLET REC)
     Route: 065
     Dates: start: 20250301

REACTIONS (7)
  - Spinal pain [Unknown]
  - Cough [Unknown]
  - Lung disorder [Unknown]
  - Pleural effusion [Unknown]
  - Pericardial effusion [Unknown]
  - Thyroid disorder [Unknown]
  - Swelling [Unknown]

NARRATIVE: CASE EVENT DATE: 20250507
